FAERS Safety Report 15396402 (Version 9)
Quarter: 2019Q1

REPORT INFORMATION
  Report Type: Report from Study
  Country: US (occurrence: US)
  Receive Date: 20180918
  Receipt Date: 20190228
  Transmission Date: 20190417
  Serious: Yes (Other)
  Sender: FDA-Public Use
  Company Number: US-PFIZER INC-2018354734

PATIENT
  Age: 85 Year
  Sex: Female

DRUGS (2)
  1. IBRANCE [Suspect]
     Active Substance: PALBOCICLIB
     Indication: BREAST CANCER METASTATIC
     Dosage: 125 MG, CYCLIC (ONCE DAILY/ 21 DAYS ON, 7 DAYS OFF)
     Route: 048
     Dates: start: 20180822
  2. FASLODEX [Concomitant]
     Active Substance: FULVESTRANT
     Indication: BREAST CANCER
     Dosage: UNK

REACTIONS (7)
  - Cough [Unknown]
  - Nausea [Not Recovered/Not Resolved]
  - Alopecia [Unknown]
  - Constipation [Recovering/Resolving]
  - Bronchitis [Unknown]
  - Product dose omission [Unknown]
  - Bone marrow failure [Unknown]

NARRATIVE: CASE EVENT DATE: 2018
